FAERS Safety Report 5953939-X (Version None)
Quarter: 2008Q4

REPORT INFORMATION
  Report Type: 
  Country: None (occurrence: None)
  Receive Date: 20081114
  Receipt Date: 20081103
  Transmission Date: 20090506
  Serious: Yes (Hospitalization, Other)
  Sender: FDA-Public Use
  Company Number: US-PFIZER INC-2008092688

PATIENT
  Sex: Female
  Weight: 89 kg

DRUGS (8)
  1. GABAPENTIN [Suspect]
     Indication: MIGRAINE
     Route: 048
     Dates: end: 20080101
  2. POLYGAM S/D [Suspect]
     Indication: MYASTHENIA GRAVIS
     Route: 042
     Dates: end: 20081010
  3. ALL OTHER THERAPEUTIC PRODUCTS [Concomitant]
  4. CELLCEPT [Concomitant]
  5. MIDRIN [Concomitant]
  6. FISH OIL [Concomitant]
  7. MELATONIN [Concomitant]
  8. IBUPROFEN TABLETS [Concomitant]

REACTIONS (9)
  - ABDOMINAL PAIN [None]
  - BLOOD PRESSURE INCREASED [None]
  - DIZZINESS [None]
  - HEADACHE [None]
  - MENINGITIS [None]
  - MYASTHENIA GRAVIS [None]
  - NAUSEA [None]
  - PALPITATIONS [None]
  - PARALYSIS [None]
